FAERS Safety Report 13743527 (Version 1)
Quarter: 2017Q3

REPORT INFORMATION
  Report Type: Spontaneous
  Country: RU (occurrence: RU)
  Receive Date: 20170711
  Receipt Date: 20170711
  Transmission Date: 20171127
  Serious: Yes (Life-Threatening)
  Sender: FDA-Public Use
  Company Number: RU-BAUSCH-BL-2017-021004

PATIENT
  Age: 86 Year
  Sex: Female

DRUGS (9)
  1. DIAZEPAM. [Concomitant]
     Active Substance: DIAZEPAM
     Indication: SEDATION
     Dosage: ONCE BEFORE THE OPERATION FOR SEDATION
     Route: 030
     Dates: start: 20150908, end: 20150908
  2. TROPICAMIDE. [Suspect]
     Active Substance: TROPICAMIDE
     Indication: MYDRIASIS
     Route: 065
     Dates: start: 20150909
  3. TIMOLOL MALEATE. [Suspect]
     Active Substance: TIMOLOL MALEATE
     Indication: PRODUCT USED FOR UNKNOWN INDICATION
     Route: 047
     Dates: start: 20150903
  4. DEXAMETHASONE. [Concomitant]
     Active Substance: DEXAMETHASONE
     Indication: PRODUCT USED FOR UNKNOWN INDICATION
     Dosage: IN THE LEFT EYE
     Dates: start: 20150903
  5. ACETAZOLAMIDE. [Suspect]
     Active Substance: ACETAZOLAMIDE
     Indication: INTRAOCULAR PRESSURE DECREASED
     Route: 065
     Dates: start: 20150909
  6. DEXAMETHASONE. [Concomitant]
     Active Substance: DEXAMETHASONE
     Indication: PRODUCT USED FOR UNKNOWN INDICATION
     Route: 030
     Dates: start: 20150909
  7. INDAPAMIDE. [Suspect]
     Active Substance: INDAPAMIDE
     Indication: HYPERTENSION
     Dosage: IN THE MORNING
     Route: 065
     Dates: start: 20150903
  8. SULFACETAMIDE SODIUM. [Concomitant]
     Active Substance: SULFACETAMIDE SODIUM
     Indication: PRODUCT USED FOR UNKNOWN INDICATION
     Dates: start: 20150903
  9. DICLOFENAC SODIUM. [Concomitant]
     Active Substance: DICLOFENAC SODIUM
     Indication: PRODUCT USED FOR UNKNOWN INDICATION
     Route: 030
     Dates: start: 20150909, end: 20150911

REACTIONS (7)
  - Bradycardia [Unknown]
  - Loss of consciousness [Unknown]
  - Fall [Unknown]
  - Dizziness [Unknown]
  - Contraindicated product administered [Unknown]
  - Hypotension [Unknown]
  - Drug interaction [Unknown]

NARRATIVE: CASE EVENT DATE: 201509
